FAERS Safety Report 14372667 (Version 1)
Quarter: 2018Q1

REPORT INFORMATION
  Report Type: Other
  Country: US (occurrence: US)
  Receive Date: 20180110
  Receipt Date: 20180110
  Transmission Date: 20180509
  Serious: Yes (Death)
  Sender: FDA-Public Use
  Company Number: US-GENUS_LIFESCIENCES-USA-POI0580201800001

PATIENT
  Age: 57 Year
  Sex: Female

DRUGS (11)
  1. FUROSEMIDE. [Suspect]
     Active Substance: FUROSEMIDE
     Dates: end: 2016
  2. HYDROCHLOROTHIAZIDE. [Suspect]
     Active Substance: HYDROCHLOROTHIAZIDE
     Dates: end: 2016
  3. METHYLPHENIDATE. [Suspect]
     Active Substance: METHYLPHENIDATE
     Dates: end: 2016
  4. CLONAZEPAM. [Suspect]
     Active Substance: CLONAZEPAM
     Dates: end: 2016
  5. ALPRAZOLAM. [Suspect]
     Active Substance: ALPRAZOLAM
     Dates: end: 2016
  6. METFORMIN [Suspect]
     Active Substance: METFORMIN HYDROCHLORIDE
     Dates: end: 2016
  7. ESZOPICLONE. [Suspect]
     Active Substance: ESZOPICLONE
     Dates: end: 2016
  8. BACLOFEN. [Suspect]
     Active Substance: BACLOFEN
     Dates: end: 2016
  9. RIVAROXABAN [Suspect]
     Active Substance: RIVAROXABAN
     Dates: end: 2016
  10. POTASSIUM CHLORIDE ORAL SOLUTION [Suspect]
     Active Substance: POTASSIUM CHLORIDE
     Dates: end: 2016
  11. TRAMADOL. [Suspect]
     Active Substance: TRAMADOL
     Dates: end: 2016

REACTIONS (1)
  - Completed suicide [Fatal]

NARRATIVE: CASE EVENT DATE: 2016
